FAERS Safety Report 24184191 (Version 4)
Quarter: 2025Q1

REPORT INFORMATION
  Report Type: Spontaneous
  Country: IN (occurrence: IN)
  Receive Date: 20240807
  Receipt Date: 20250129
  Transmission Date: 20250409
  Serious: Yes (Hospitalization)
  Sender: PFIZER
  Company Number: IN-PFIZER INC-PV202400101585

PATIENT
  Age: 53 Year
  Sex: Male

DRUGS (6)
  1. LORLATINIB [Suspect]
     Active Substance: LORLATINIB
     Indication: Non-small cell lung cancer metastatic
     Dosage: 100 MG, 1X/DAY
     Route: 048
  2. LORLATINIB [Suspect]
     Active Substance: LORLATINIB
     Dosage: 75 MG, 1X/DAY
     Route: 048
     Dates: start: 20241023
  3. LORLATINIB [Suspect]
     Active Substance: LORLATINIB
     Dosage: 100 MG, 1X/DAY
     Route: 048
     Dates: start: 20250120
  4. FOLVITE [Concomitant]
     Active Substance: FOLIC ACID
     Dosage: 5 MG, 1X/DAY
  5. CARBOHYDRATES\FATTY ACIDS\MINERALS\PROTEIN\VITAMINS [Concomitant]
     Active Substance: CARBOHYDRATES\FATTY ACIDS\MINERALS\PROTEIN\VITAMINS
     Dosage: POWDER 2SCOOPS IN GLASS OF WATER THRICE DAILY
  6. MONGITROL [Concomitant]
     Dosage: 1 TAB, 1X/DAY

REACTIONS (10)
  - Asthenia [Unknown]
  - Oedema peripheral [Unknown]
  - Haemoglobin decreased [Unknown]
  - Haematocrit decreased [Unknown]
  - Eosinophil percentage increased [Unknown]
  - Blood urea increased [Unknown]
  - Red blood cell count decreased [Unknown]
  - Normochromic normocytic anaemia [Unknown]
  - Eosinophilia [Unknown]
  - Aspartate aminotransferase increased [Unknown]
